FAERS Safety Report 13652651 (Version 1)
Quarter: 2017Q2

REPORT INFORMATION
  Report Type: Spontaneous
  Country: US (occurrence: US)
  Receive Date: 20170614
  Receipt Date: 20170614
  Transmission Date: 20170830
  Serious: No
  Sender: FDA-Public Use
  Company Number: US-ROCHE-1355174

PATIENT
  Age: 70 Year
  Sex: Female

DRUGS (8)
  1. XELODA [Suspect]
     Active Substance: CAPECITABINE
     Dosage: 4 TABS TWICE DAILY FOR A WEEK ON, A WEEK OFF
     Route: 048
     Dates: start: 201307
  2. FUROSEMIDE. [Concomitant]
     Active Substance: FUROSEMIDE
     Route: 048
  3. XELODA [Suspect]
     Active Substance: CAPECITABINE
     Indication: COLON CANCER
     Dosage: 4 TABLETS TWICE DAILY FOR A WEEK ON, A WEEK OFF (RECEIVED ON 1, 3 AND 5 WEEK)
     Route: 048
  4. AVASTIN [Suspect]
     Active Substance: BEVACIZUMAB
     Indication: COLON CANCER
     Dosage: EVERY OTHER WEEK, MAINTENANCE
     Route: 042
     Dates: start: 2013
  5. LATANOPROST. [Concomitant]
     Active Substance: LATANOPROST
     Dosage: OPHTHALMIC SOLUTION
     Route: 065
  6. AMLODIPINE [Concomitant]
     Active Substance: AMLODIPINE BESYLATE
     Dosage: AT BEDTIME
     Route: 048
  7. XELODA [Suspect]
     Active Substance: CAPECITABINE
     Dosage: 2 TABLETS TWICE DAILY ON WEEK 7, 9 AND 12 DIFFERENT WEEKS.
     Route: 048
  8. POTASSIUM CHLORIDE. [Concomitant]
     Active Substance: POTASSIUM CHLORIDE
     Route: 048

REACTIONS (3)
  - Musculoskeletal stiffness [Not Recovered/Not Resolved]
  - Tooth disorder [Not Recovered/Not Resolved]
  - Colon cancer metastatic [Unknown]

NARRATIVE: CASE EVENT DATE: 201311
